FAERS Safety Report 16082546 (Version 1)
Quarter: 2019Q1

REPORT INFORMATION
  Report Type: Spontaneous
  Country: GB (occurrence: GB)
  Receive Date: 20190318
  Receipt Date: 20190318
  Transmission Date: 20190418
  Serious: Yes (Other)
  Sender: FDA-Public Use
  Company Number: GB-DEXPHARM-20190173

PATIENT
  Age: 79 Year
  Sex: Male
  Weight: 71 kg

DRUGS (6)
  1. ACIDEX [Concomitant]
     Active Substance: CALCIUM CARBONATE\SODIUM ALGINATE\SODIUM BICARBONATE
     Dosage: SPOON.
     Dates: start: 20190109, end: 20190206
  2. AMOXICILLIN. [Concomitant]
     Active Substance: AMOXICILLIN
     Dates: start: 20181224, end: 20181231
  3. CANDESARTAN. [Concomitant]
     Active Substance: CANDESARTAN
     Dates: start: 20170818
  4. HYPROMELLOSE [Concomitant]
     Active Substance: HYPROMELLOSES
     Dosage: AS NECESSARY
     Dates: start: 20170818
  5. CO-MAGALDROX [Concomitant]
     Dosage: SPOON.
     Dates: start: 20190204
  6. OMEPRAZOLE. [Suspect]
     Active Substance: OMEPRAZOLE
     Dates: start: 20190204, end: 20190213

REACTIONS (2)
  - Malaise [Recovered/Resolved]
  - Rash [Recovered/Resolved]

NARRATIVE: CASE EVENT DATE: 20190219
